FAERS Safety Report 17157577 (Version 2)
Quarter: 2019Q4

REPORT INFORMATION
  Report Type: Spontaneous
  Country: US (occurrence: US)
  Receive Date: 20191216
  Receipt Date: 20191231
  Transmission Date: 20200122
  Serious: Yes (Other)
  Sender: FDA-Public Use
  Company Number: NVSC2019US042766

PATIENT
  Age: 65 Year
  Sex: Male
  Weight: 77.11 kg

DRUGS (1)
  1. BEOVU [Suspect]
     Active Substance: BROLUCIZUMAB-DBLL
     Indication: RETINAL NEOVASCULARISATION
     Dosage: 6 MG/0.5
     Route: 042
     Dates: start: 20191101

REACTIONS (3)
  - Vision blurred [Unknown]
  - Retinal tear [Recovered/Resolved]
  - Vitreous floaters [Unknown]

NARRATIVE: CASE EVENT DATE: 20191118
